FAERS Safety Report 8609292-6 (Version None)
Quarter: 2012Q3

REPORT INFORMATION
  Report Type: 
  Country: None (occurrence: None)
  Receive Date: 20120821
  Receipt Date: 20120814
  Transmission Date: 20120928
  Serious: Yes (Hospitalization, Other)
  Sender: FDA-Public Use
  Company Number: PHHY2011CA82998

PATIENT
  Sex: Female

DRUGS (5)
  1. GILENYA [Suspect]
     Indication: RELAPSING-REMITTING MULTIPLE SCLEROSIS
     Dosage: 0.5 MG, QD
     Route: 048
     Dates: start: 20110913
  2. RABEPRAZOLE SODIUM [Concomitant]
  3. GLUCOSAMINE [Suspect]
  4. NEURONTIN [Concomitant]
  5. DETROL [Concomitant]

REACTIONS (20)
  - COUGH [None]
  - HYPERTENSION [None]
  - NECK PAIN [None]
  - OESOPHAGEAL ULCER [None]
  - NAUSEA [None]
  - RESPIRATORY TRACT CONGESTION [None]
  - CONTUSION [None]
  - DYSPEPSIA [None]
  - BRONCHITIS [None]
  - SKIN DISCOLOURATION [None]
  - MUSCLE SPASMS [None]
  - OEDEMA PERIPHERAL [None]
  - NEUTROPHIL COUNT DECREASED [None]
  - CHEST PAIN [None]
  - HEADACHE [None]
  - NASOPHARYNGITIS [None]
  - BACK PAIN [None]
  - DIZZINESS [None]
  - LEUKOPENIA [None]
  - LYMPHOCYTE COUNT DECREASED [None]
